FAERS Safety Report 4838869-9 (Version None)
Quarter: 2005Q4

REPORT INFORMATION
  Report Type: 
  Country: None (occurrence: None)
  Receive Date: 20051123
  Receipt Date: 20051123
  Transmission Date: 20060501
  Serious: Yes (Hospitalization, Disabling)
  Sender: FDA-Public Use
  Company Number: None

PATIENT
  Age: 69 Year
  Sex: Female

DRUGS (18)
  1. TOPAMAX [Suspect]
     Indication: HEADACHE
     Dosage: 25MG  DAILY  PO
     Route: 048
     Dates: start: 20050801, end: 20050810
  2. TOPAMAX [Suspect]
     Indication: PROPHYLAXIS
     Dosage: 25MG  DAILY  PO
     Route: 048
     Dates: start: 20050801, end: 20050810
  3. BENZTROPINE MESYLATE [Suspect]
     Indication: ADVERSE DRUG REACTION
     Dosage: 2MG   X TWO DOSES   IV BOLUS
     Route: 040
     Dates: start: 20050810, end: 20050810
  4. BUTALBITAL [Concomitant]
  5. FIORICET [Concomitant]
  6. MULTI-VITAMIN [Concomitant]
  7. STOOL SOFTENER [Concomitant]
  8. FLAXSEED [Concomitant]
  9. CALCIUM SUPPLEMENT [Concomitant]
  10. VITAMIN D [Concomitant]
  11. MAGNESIUM [Concomitant]
  12. ZINC [Concomitant]
  13. LYSINE [Concomitant]
  14. DEXAMETHASONE [Concomitant]
  15. PROMETHAZINE [Concomitant]
  16. DIPHENHYDRAMINE HCL [Concomitant]
  17. BENZTROPINE MESYLATE [Concomitant]
  18. LORAZEPAM [Concomitant]

REACTIONS (6)
  - ADVERSE DRUG REACTION [None]
  - ANGLE CLOSURE GLAUCOMA [None]
  - DEPRESSED LEVEL OF CONSCIOUSNESS [None]
  - LOSS OF CONSCIOUSNESS [None]
  - PHOTOPHOBIA [None]
  - SEDATION [None]
